FAERS Safety Report 8743966 (Version 4)
Quarter: 2012Q4

REPORT INFORMATION
  Report Type: 
  Country: GB (occurrence: GB)
  Receive Date: 20120824
  Receipt Date: 20121018
  Transmission Date: 20130627
  Serious: Yes (Life-Threatening)
  Sender: FDA-Public Use
  Company Number: GB-PFIZER INC-2012203163

PATIENT
  Age: 59 Year
  Sex: Female
  Weight: 81.9 kg

DRUGS (4)
  1. SULFASALAZINE [Suspect]
     Indication: PSORIATIC ARTHROPATHY
     Dosage: 500mg daily and 1 gram daily.
     Route: 048
     Dates: start: 20120616, end: 20120704
  2. NAPROXEN [Concomitant]
     Indication: ARTHRALGIA
     Dosage: 500 mg, 2x/day
     Dates: start: 20080619
  3. CO-CODAMOL [Concomitant]
     Indication: ARTHRALGIA
     Dosage: 1 DF, 4x/day
  4. OMEPRAZOLE [Concomitant]
     Indication: GASTROINTESTINAL DISORDER
     Dosage: UNK
     Dates: start: 20080609

REACTIONS (6)
  - Rash generalised [Recovering/Resolving]
  - Local swelling [Recovering/Resolving]
  - Swelling face [Recovering/Resolving]
  - Dyspnoea [Recovering/Resolving]
  - Dysphagia [Recovering/Resolving]
  - White blood cell count decreased [Unknown]
